FAERS Safety Report 9804221 (Version 1)
Quarter: 2014Q1

REPORT INFORMATION
  Report Type: Spontaneous
  Country: US (occurrence: None)
  Receive Date: 20140106
  Receipt Date: 20140106
  Transmission Date: 20141002
  Serious: Yes (Other)
  Sender: FDA-Public Use
  Company Number: 2013-00166

PATIENT
  Age: 61 Year
  Sex: Male
  Weight: 124.74 kg

DRUGS (4)
  1. ZICAM COLD REMEDY RAPIDMELTS [Suspect]
     Indication: NASOPHARYNGITIS
     Dosage: 1 MELT ORALLY EVERY 4 HOURS
     Dates: start: 20131206, end: 20131227
  2. ZICAM COLD REMEDY RAPIDMELTS [Suspect]
     Indication: INFLUENZA
     Dosage: 1 MELT ORALLY EVERY 4 HOURS
     Dates: start: 20131206, end: 20131227
  3. ATENOLOL [Concomitant]
  4. UNSPEICIFED MEDICATION FOR ACID REFLUX [Concomitant]

REACTIONS (1)
  - Ageusia [None]
